FAERS Safety Report 10722484 (Version 1)
Quarter: 2015Q1

REPORT INFORMATION
  Report Type: Spontaneous
  Country: CA (occurrence: CA)
  Receive Date: 20150120
  Receipt Date: 20150120
  Transmission Date: 20150721
  Serious: Yes (Other)
  Sender: FDA-Public Use
  Company Number: CA-BAUSCH-BL-2015-000472

PATIENT
  Age: 86 Year
  Sex: Male
  Weight: 72.64 kg

DRUGS (1)
  1. MINITRAN [Suspect]
     Active Substance: NITROGLYCERIN
     Indication: PRODUCT USED FOR UNKNOWN INDICATION
     Route: 006

REACTIONS (2)
  - Dermatitis contact [Recovered/Resolved]
  - Product adhesion issue [Recovered/Resolved]
